FAERS Safety Report 9729163 (Version 4)
Quarter: 2014Q1

REPORT INFORMATION
  Report Type: Report from Study
  Country: GB (occurrence: GB)
  Receive Date: 20131204
  Receipt Date: 20140102
  Transmission Date: 20141002
  Serious: Yes (Hospitalization)
  Sender: FDA-Public Use
  Company Number: GB-ROCHE-1300839

PATIENT
  Age: 82 Year
  Sex: Male
  Weight: 81.8 kg

DRUGS (6)
  1. VISMODEGIB [Suspect]
     Indication: BASAL CELL CARCINOMA
     Dosage: DATE OF LAST DOSE PRIOR TO SAE ONSET: 23/SEP/2013
     Route: 048
     Dates: start: 20130517, end: 20130924
  2. ASPIRIN [Concomitant]
     Indication: ATRIAL FIBRILLATION
     Route: 065
     Dates: start: 201101
  3. RAMIPRIL [Concomitant]
     Indication: HYPERTENSION
     Route: 065
     Dates: start: 201101
  4. SENNA [Concomitant]
     Indication: CONSTIPATION
     Route: 065
     Dates: start: 20130809
  5. BISOPROLOL [Concomitant]
     Indication: ATRIAL FIBRILLATION
     Route: 065
     Dates: start: 20131105
  6. ENOXAPARIN [Concomitant]
     Route: 065
     Dates: start: 20131105

REACTIONS (1)
  - Gastric ulcer perforation [Recovered/Resolved]
